FAERS Safety Report 6680457-6 (Version None)
Quarter: 2010Q2

REPORT INFORMATION
  Report Type: 
  Country: None (occurrence: None)
  Receive Date: 20100414
  Receipt Date: 20100405
  Transmission Date: 20101027
  Serious: Yes (Hospitalization)
  Sender: FDA-Public Use
  Company Number: US-BIOGENIDEC-2010BI009464

PATIENT
  Age: 63 Year
  Sex: Female
  Weight: 77 kg

DRUGS (2)
  1. AVONEX [Suspect]
     Indication: MULTIPLE SCLEROSIS
     Route: 030
     Dates: start: 19990101, end: 20040101
  2. AVONEX [Suspect]
     Route: 030
     Dates: start: 20051001

REACTIONS (8)
  - BACK PAIN [None]
  - FALL [None]
  - FEELING HOT [None]
  - GOITRE [None]
  - MUSCLE SPASMS [None]
  - PAIN IN EXTREMITY [None]
  - SPINAL COLUMN STENOSIS [None]
  - UPPER EXTREMITY MASS [None]
